FAERS Safety Report 5378655-7 (Version None)
Quarter: 2007Q2

REPORT INFORMATION
  Report Type: 
  Country: None (occurrence: None)
  Receive Date: 20070530
  Receipt Date: 20070221
  Transmission Date: 20071010
  Serious: No
  Sender: FDA-Public Use
  Company Number: 2007PV030462

PATIENT
  Age: 70 Year
  Sex: Female

DRUGS (4)
  1. BYETTA [Suspect]
     Indication: DIABETES MELLITUS NON-INSULIN-DEPENDENT
     Dosage: 5 MCG;BID;SC
     Route: 058
     Dates: start: 20070218
  2. METFORMIN HCL [Concomitant]
  3. GLUCOTROL XL [Concomitant]
  4. INSULIN [Concomitant]

REACTIONS (3)
  - ABDOMINAL PAIN UPPER [None]
  - HYPERCHLORHYDRIA [None]
  - NAUSEA [None]
